FAERS Safety Report 23509630 (Version 1)
Quarter: 2024Q1

REPORT INFORMATION
  Report Type: Spontaneous
  Country: US (occurrence: None)
  Receive Date: 20240210
  Receipt Date: 20240210
  Transmission Date: 20240410
  Serious: Yes (Other)
  Sender: FDA-Public Use
  Company Number: US-USWM, LLC-UWM202402-000011

PATIENT
  Sex: Female

DRUGS (1)
  1. LUCEMYRA [Suspect]
     Active Substance: LOFEXIDINE
     Indication: Product used for unknown indication
     Dosage: NOT PROVIDED

REACTIONS (2)
  - Splenomegaly [Unknown]
  - Megacolon [Unknown]
